FAERS Safety Report 13568365 (Version 1)
Quarter: 2017Q2

REPORT INFORMATION
  Report Type: Report from Study
  Country: CA (occurrence: CA)
  Receive Date: 20170522
  Receipt Date: 20170522
  Transmission Date: 20170830
  Serious: Yes (Other)
  Sender: FDA-Public Use
  Company Number: CA-JNJFOC-20170514207

PATIENT
  Age: 16 Year
  Sex: Male
  Weight: 72 kg

DRUGS (2)
  1. HYDROCORTISONE. [Concomitant]
     Active Substance: HYDROCORTISONE
     Indication: PREMEDICATION
     Route: 042
  2. REMICADE [Suspect]
     Active Substance: INFLIXIMAB
     Indication: CROHN^S DISEASE
     Route: 042
     Dates: start: 20130221

REACTIONS (3)
  - Product use issue [Unknown]
  - Off label use [Unknown]
  - Muscle rupture [Recovered/Resolved]

NARRATIVE: CASE EVENT DATE: 20130221
